FAERS Safety Report 10028873 (Version 1)
Quarter: 2014Q1

REPORT INFORMATION
  Report Type: Spontaneous
  Country: BR (occurrence: BR)
  Receive Date: 20140321
  Receipt Date: 20140321
  Transmission Date: 20141002
  Serious: Yes (Hospitalization)
  Sender: FDA-Public Use
  Company Number: BR-ELI_LILLY_AND_COMPANY-BR201403007799

PATIENT
  Age: 78 Year
  Sex: Female
  Weight: 82 kg

DRUGS (6)
  1. HYDROCHLOROTHIAZIDE W/OLMESARTAN MEDOXOMIL [Concomitant]
     Dosage: UNK
     Route: 065
  2. HYDRALAZINE [Concomitant]
     Dosage: UNK
     Route: 065
  3. LEVOTHYROXINE [Concomitant]
     Dosage: UNK
     Route: 065
  4. DIOSMIN W/HESPERIDIN [Concomitant]
     Dosage: UNK
     Route: 065
  5. EFFIENT [Suspect]
     Indication: ANTIPLATELET THERAPY
     Dosage: 10 MG, QD
     Route: 048
     Dates: start: 201402
  6. ATORVASTATIN [Concomitant]
     Dosage: UNK
     Route: 065

REACTIONS (1)
  - Angioplasty [Recovered/Resolved]
